FAERS Safety Report 6618987-5 (Version None)
Quarter: 2010Q1

REPORT INFORMATION
  Report Type: 
  Country: None (occurrence: None)
  Receive Date: 20100308
  Receipt Date: 20100223
  Transmission Date: 20100710
  Serious: Yes (Other)
  Sender: FDA-Public Use
  Company Number: PHHY2010FR11443

PATIENT
  Age: 70 Year

DRUGS (3)
  1. RASILEZ [Suspect]
     Dosage: 150 MG, UNK
     Dates: start: 20091001, end: 20091201
  2. RASILEZ [Suspect]
     Dosage: 300 MG
     Route: 065
     Dates: start: 20091201, end: 20091201
  3. ANTIHYPERTENSIVES [Concomitant]
     Route: 065

REACTIONS (2)
  - HYPERKALAEMIA [None]
  - RENAL FAILURE CHRONIC [None]
